FAERS Safety Report 6243020-7 (Version None)
Quarter: 2009Q2

REPORT INFORMATION
  Report Type: 
  Country: None (occurrence: None)
  Receive Date: 20090624
  Receipt Date: 20090612
  Transmission Date: 20091009
  Serious: Yes (Hospitalization)
  Sender: FDA-Public Use
  Company Number: CO-PFIZER INC-2009228007

PATIENT

DRUGS (2)
  1. DALACIN [Suspect]
     Indication: TONSILLITIS
     Dosage: 300 MG, 4X/DAY
     Route: 048
     Dates: start: 20090604, end: 20090605
  2. AINEX [Concomitant]
     Dates: start: 20090604

REACTIONS (1)
  - TACHYCARDIA [None]
